FAERS Safety Report 11932059 (Version 2)
Quarter: 2016Q1

REPORT INFORMATION
  Report Type: Spontaneous
  Country: US (occurrence: US)
  Receive Date: 20160120
  Receipt Date: 20160330
  Transmission Date: 20160526
  Serious: Yes (Hospitalization)
  Sender: FDA-Public Use
  Company Number: US-PFIZER INC-2015477366

PATIENT
  Age: 60 Year
  Sex: Male
  Weight: 136 kg

DRUGS (10)
  1. PRADAXA [Concomitant]
     Active Substance: DABIGATRAN ETEXILATE MESYLATE
     Dosage: UNK
  2. PREMARIN [Suspect]
     Active Substance: ESTROGENS, CONJUGATED
     Indication: METRORRHAGIA
     Dosage: 0.625 MG, 2X/WEEK
     Route: 050
     Dates: start: 201511, end: 201512
  3. PREVACID [Concomitant]
     Active Substance: LANSOPRAZOLE
     Indication: DYSPEPSIA
     Dosage: 1 DF, DAILY AT NIGHT
  4. LANTUS SOLOSTAR [Concomitant]
     Active Substance: INSULIN GLARGINE
     Dosage: UNK
  5. SOTALOL. [Concomitant]
     Active Substance: SOTALOL
     Indication: ATRIAL FIBRILLATION
     Dosage: 1 DF, 2X/DAY; 80 MG ONE TABLET TWICE A DAY
  6. XARELTO [Concomitant]
     Active Substance: RIVAROXABAN
     Dosage: UNK
  7. PREMARIN [Suspect]
     Active Substance: ESTROGENS, CONJUGATED
     Dosage: 0.625 MG, 2X/WEEK
     Route: 050
  8. METFORMIN [Concomitant]
     Active Substance: METFORMIN HYDROCHLORIDE
     Indication: DIABETES MELLITUS
     Dosage: 2 DF, 2X/DAY; 500 MG TWO TABLETS TWICE A DAY
  9. LIPITOR [Concomitant]
     Active Substance: ATORVASTATIN CALCIUM
     Dosage: DAILY EVERY EVENING
  10. HYDROCODONE [Concomitant]
     Active Substance: HYDROCODONE
     Indication: ARTHRITIS
     Dosage: 325 MG, 1X/DAY

REACTIONS (5)
  - Infection [Recovering/Resolving]
  - Exposure via partner [Recovering/Resolving]
  - Micturition disorder [Recovering/Resolving]
  - Rash [Recovering/Resolving]
  - Penile pain [Recovering/Resolving]

NARRATIVE: CASE EVENT DATE: 201511
